FAERS Safety Report 4465978-9 (Version None)
Quarter: 2004Q3

REPORT INFORMATION
  Report Type: 
  Country: None (occurrence: None)
  Receive Date: 20040930
  Receipt Date: 20040920
  Transmission Date: 20050211
  Serious: Yes (Death)
  Sender: FDA-Public Use
  Company Number: STA-AE-04-MTX-424

PATIENT
  Age: 74 Year
  Sex: Female

DRUGS (10)
  1. METHOTREXATE [Suspect]
     Indication: RHEUMATOID ARTHRITIS
     Dosage: 7.5 MG 1X PER 1 WK, ORAL
     Route: 048
     Dates: start: 20040820, end: 20040905
  2. ATENOLOL [Concomitant]
  3. PERINDOPRIL (PERINDOPRIL) [Concomitant]
  4. BUMETANIDE [Concomitant]
  5. RISEDRONATE (RISEDRONATE) [Concomitant]
  6. CALCIUM CARBONATE (CALCIUM CARBONATE) [Concomitant]
  7. ASCORBIC ACID [Concomitant]
  8. PREDNISOLONE [Concomitant]
  9. ROFECOXIB [Concomitant]
  10. SIMVASTATIN [Concomitant]

REACTIONS (1)
  - NEUTROPENIC SEPSIS [None]
